FAERS Safety Report 18083761 (Version 1)
Quarter: 2020Q3

REPORT INFORMATION
  Report Type: Spontaneous
  Country: DE (occurrence: DE)
  Receive Date: 20200729
  Receipt Date: 20200729
  Transmission Date: 20201103
  Serious: No
  Sender: FDA-Public Use
  Company Number: DE-ALKEM LABORATORIES LIMITED-DE-ALKEM-2020-01422

PATIENT
  Sex: Female

DRUGS (1)
  1. CEFUROXIME AXETIL. [Suspect]
     Active Substance: CEFUROXIME AXETIL
     Indication: GINGIVITIS
     Dosage: 1000 MILLIGRAM, OD
     Route: 048

REACTIONS (6)
  - Diarrhoea [Recovering/Resolving]
  - Abdominal pain [Recovering/Resolving]
  - Pyrexia [Unknown]
  - Abdominal pain lower [Recovering/Resolving]
  - Abdominal distension [Recovering/Resolving]
  - Frequent bowel movements [Unknown]
